FAERS Safety Report 22243046 (Version 1)
Quarter: 2023Q2

REPORT INFORMATION
  Report Type: Spontaneous
  Country: US (occurrence: US)
  Receive Date: 20230424
  Receipt Date: 20230424
  Transmission Date: 20230722
  Serious: Yes (Other)
  Sender: FDA-Public Use
  Company Number: US-MYLANLABS-2023M1043187

PATIENT
  Age: 30 Year
  Sex: Female

DRUGS (14)
  1. CIPROFLOXACIN [Suspect]
     Active Substance: CIPROFLOXACIN
     Indication: Crohn^s disease
     Dosage: UNK
     Route: 048
  2. CIPROFLOXACIN [Suspect]
     Active Substance: CIPROFLOXACIN
     Indication: Metastatic cutaneous Crohn^s disease
  3. ADALIMUMAB [Suspect]
     Active Substance: ADALIMUMAB
     Indication: Crohn^s disease
     Dosage: UNK
     Route: 065
  4. ADALIMUMAB [Suspect]
     Active Substance: ADALIMUMAB
     Indication: Metastatic cutaneous Crohn^s disease
  5. INFLIXIMAB [Suspect]
     Active Substance: INFLIXIMAB
     Indication: Crohn^s disease
     Dosage: UNK
     Route: 065
  6. INFLIXIMAB [Suspect]
     Active Substance: INFLIXIMAB
     Indication: Metastatic cutaneous Crohn^s disease
  7. RIFABUTIN [Suspect]
     Active Substance: RIFABUTIN
     Indication: Crohn^s disease
     Dosage: UNK
     Route: 065
  8. RIFABUTIN [Suspect]
     Active Substance: RIFABUTIN
     Indication: Metastatic cutaneous Crohn^s disease
  9. RIFAXIMIN [Suspect]
     Active Substance: RIFAXIMIN
     Indication: Crohn^s disease
     Dosage: UNK
     Route: 065
  10. RIFAXIMIN [Suspect]
     Active Substance: RIFAXIMIN
     Indication: Metastatic cutaneous Crohn^s disease
  11. SILVER SULFADIAZINE [Suspect]
     Active Substance: SILVER SULFADIAZINE
     Indication: Crohn^s disease
     Dosage: UNK
     Route: 065
  12. SILVER SULFADIAZINE [Suspect]
     Active Substance: SILVER SULFADIAZINE
     Indication: Metastatic cutaneous Crohn^s disease
  13. METRONIDAZOLE [Suspect]
     Active Substance: METRONIDAZOLE
     Indication: Crohn^s disease
     Dosage: UNK
     Route: 048
  14. METRONIDAZOLE [Suspect]
     Active Substance: METRONIDAZOLE
     Indication: Metastatic cutaneous Crohn^s disease

REACTIONS (3)
  - Drug ineffective for unapproved indication [Unknown]
  - Lupus-like syndrome [Unknown]
  - Off label use [Unknown]
